FAERS Safety Report 5145189-4 (Version None)
Quarter: 2006Q4

REPORT INFORMATION
  Report Type: 
  Country: None (occurrence: None)
  Receive Date: 20061031
  Receipt Date: 20061019
  Transmission Date: 20070319
  Serious: Yes (Other)
  Sender: FDA-Public Use
  Company Number: 2006130837

PATIENT

DRUGS (3)
  1. BEXTRA [Suspect]
     Dosage: UNKNOWN
  2. CELEBREX [Suspect]
     Dosage: UNKNOWN
  3. VIOXX [Suspect]
     Dosage: UNKNOWN
     Dates: start: 20010626, end: 20031229

REACTIONS (1)
  - ISCHAEMIC STROKE [None]
